FAERS Safety Report 7971540-3 (Version None)
Quarter: 2011Q4

REPORT INFORMATION
  Report Type: 
  Country: None (occurrence: None)
  Receive Date: 20111209
  Receipt Date: 20111209
  Transmission Date: 20120403
  Serious: Yes (Hospitalization)
  Sender: FDA-Public Use
  Company Number: None

PATIENT
  Sex: Female
  Weight: 132 kg

DRUGS (2)
  1. TAXOL [Suspect]
     Dosage: 350 MG
  2. CARBOPLATIN [Suspect]
     Dosage: 831 MG

REACTIONS (6)
  - PSEUDOMONAS TEST POSITIVE [None]
  - PYREXIA [None]
  - CHILLS [None]
  - CULTURE WOUND POSITIVE [None]
  - STAPHYLOCOCCUS TEST POSITIVE [None]
  - NEUTROPENIA [None]
